FAERS Safety Report 6873756-6 (Version None)
Quarter: 2010Q3

REPORT INFORMATION
  Report Type: 
  Country: None (occurrence: None)
  Receive Date: 20100723
  Receipt Date: 20090308
  Transmission Date: 20110219
  Serious: No
  Sender: FDA-Public Use
  Company Number: US-PFIZER INC-2009180172

PATIENT
  Sex: Female
  Weight: 49 kg

DRUGS (3)
  1. CHANTIX [Suspect]
     Indication: SMOKING CESSATION THERAPY
     Dates: start: 20090305
  2. TOPAMAX [Concomitant]
  3. LEXAPRO [Concomitant]

REACTIONS (5)
  - ASTHENIA [None]
  - DIZZINESS [None]
  - NASOPHARYNGITIS [None]
  - NAUSEA [None]
  - SOMNOLENCE [None]
